FAERS Safety Report 6614466-X (Version None)
Quarter: 2010Q1

REPORT INFORMATION
  Report Type: 
  Country: None (occurrence: None)
  Receive Date: 20100304
  Receipt Date: 20100304
  Transmission Date: 20100710
  Serious: No
  Sender: FDA-Public Use
  Company Number: None

PATIENT
  Age: 42 Year
  Sex: Male

DRUGS (1)
  1. LIPITOR [Suspect]
     Indication: DYSLIPIDAEMIA
     Dosage: 20MG DAILY PO, SPORADIC USE
     Route: 048
     Dates: start: 20090701, end: 20100301

REACTIONS (1)
  - BLOOD CREATINE PHOSPHOKINASE INCREASED [None]
